FAERS Safety Report 24855962 (Version 1)
Quarter: 2025Q1

REPORT INFORMATION
  Report Type: Spontaneous
  Country: GB (occurrence: GB)
  Receive Date: 20250117
  Receipt Date: 20250117
  Transmission Date: 20250409
  Serious: Yes (Other)
  Sender: ALEXION PHARMACEUTICALS
  Company Number: GB-MHRA-EMIS-10896-1dd2e91e-30da-4160-9296-9c384c652051

PATIENT
  Age: 75 Year
  Weight: 79 kg

DRUGS (6)
  1. DAPAGLIFLOZIN [Suspect]
     Active Substance: DAPAGLIFLOZIN
  2. DAPAGLIFLOZIN [Suspect]
     Active Substance: DAPAGLIFLOZIN
  3. SPIKEVAX [Concomitant]
     Active Substance: CX-046684
     Indication: COVID-19 immunisation
     Route: 030
  4. SPIKEVAX [Concomitant]
     Active Substance: CX-046684
  5. TADALAFIL [Concomitant]
     Active Substance: TADALAFIL
     Indication: Type 2 diabetes mellitus
  6. DOXYCYCLINE [Concomitant]
     Active Substance: DOXYCYCLINE
     Indication: Cough

REACTIONS (1)
  - Skin exfoliation [Recovered/Resolved]
